FAERS Safety Report 22536348 (Version 9)
Quarter: 2023Q4

REPORT INFORMATION
  Report Type: Spontaneous
  Country: CO (occurrence: CO)
  Receive Date: 20230608
  Receipt Date: 20231108
  Transmission Date: 20240110
  Serious: No
  Sender: FDA-Public Use
  Company Number: CO-PFIZER INC-PV202300099809

PATIENT
  Age: 7 Year
  Sex: Male

DRUGS (1)
  1. GENOTROPIN [Suspect]
     Active Substance: SOMATROPIN
     Dosage: 0.8 MG, DAILY
     Route: 058

REACTIONS (7)
  - Drug dose omission by device [Unknown]
  - Poor quality device used [Unknown]
  - Device mechanical issue [Unknown]
  - Device information output issue [Unknown]
  - Device physical property issue [Unknown]
  - Product primary packaging issue [Unknown]
  - Lack of injection site rotation [Unknown]

NARRATIVE: CASE EVENT DATE: 20230601
